FAERS Safety Report 4851841-8 (Version None)
Quarter: 2005Q4

REPORT INFORMATION
  Report Type: 
  Country: None (occurrence: None)
  Receive Date: 20051125
  Receipt Date: 20041210
  Transmission Date: 20060501
  Serious: Yes (Other)
  Sender: FDA-Public Use
  Company Number: 2004090480

PATIENT
  Age: 70 Year
  Sex: Female
  Weight: 86.1834 kg

DRUGS (11)
  1. TIKOSYN [Suspect]
     Indication: ATRIAL FIBRILLATION
     Dosage: 500 MCG (250 MCG, 2 IN 1 D), ORAL
     Route: 048
     Dates: start: 20040901
  2. TIKOSYN [Suspect]
     Indication: ATRIAL FLUTTER
     Dosage: 500 MCG (250 MCG, 2 IN 1 D), ORAL
     Route: 048
     Dates: start: 20040901
  3. DILTIAZEM HYDROCHLORIDE (DILTAIZEM HYDROCHLORIDE) [Concomitant]
  4. METOPROLOL (METOPOROLOL) [Concomitant]
  5. WARFARIN SODIUM [Concomitant]
  6. POTASSIUM (POTASSIUM) [Concomitant]
  7. MAGNESIUM (MAGNESIUM) [Concomitant]
  8. FUROSEMIDE [Concomitant]
  9. PROPAFENONE (PROPAGENONE) [Concomitant]
  10. CALCIUM (CALCIUM) [Concomitant]
  11. ALENDRONATE SODIUM (ALENDDRONATE) [Concomitant]

REACTIONS (5)
  - ACCELERATED IDIOVENTRICULAR RHYTHM [None]
  - ELECTROCARDIOGRAM QT PROLONGED [None]
  - RASH PRURITIC [None]
  - VENTRICULAR TACHYCARDIA [None]
  - VIRAL INFECTION [None]
